FAERS Safety Report 8031519-2 (Version None)
Quarter: 2012Q1

REPORT INFORMATION
  Report Type: 
  Country: None (occurrence: None)
  Receive Date: 20120109
  Receipt Date: 20120103
  Transmission Date: 20120608
  Serious: Yes (Life-Threatening, Hospitalization)
  Sender: FDA-Public Use
  Company Number: US-BAYER-2011-048394

PATIENT
  Age: 48 Year
  Sex: Female
  Weight: 74.83 kg

DRUGS (13)
  1. YAZ [Suspect]
     Indication: CONTRACEPTION
     Dosage: UNK UNK, UNK
     Route: 048
     Dates: start: 20040101, end: 20070601
  2. YASMIN [Suspect]
     Indication: MENSTRUAL CYCLE MANAGEMENT
  3. MULTI-VITAMIN [Concomitant]
  4. FLAXSEED OIL [Concomitant]
  5. GARLIC [Concomitant]
  6. MOTRIN [Concomitant]
     Indication: HEADACHE
     Dosage: UNK UNK, PRN
  7. ASPIRIN [Concomitant]
  8. YASMIN [Suspect]
     Indication: CONTRACEPTION
     Dosage: UNK UNK, UNK
     Route: 048
     Dates: start: 20040101, end: 20070601
  9. BENADRYL [Concomitant]
     Indication: MULTIPLE ALLERGIES
     Dosage: 25 MG, HS
  10. CINNAMON [Concomitant]
  11. ACETAMINOPHEN [Concomitant]
     Indication: HEADACHE
     Dosage: UNK UNK, PRN
  12. YAZ [Suspect]
     Indication: MENSTRUAL CYCLE MANAGEMENT
  13. CHROMIUM CHLORIDE [Concomitant]

REACTIONS (10)
  - FATIGUE [None]
  - ANXIETY [None]
  - GENERAL PHYSICAL HEALTH DETERIORATION [None]
  - PULMONARY EMBOLISM [None]
  - DEEP VEIN THROMBOSIS [None]
  - ASTHENIA [None]
  - PAIN [None]
  - THROMBOSIS [None]
  - ANHEDONIA [None]
  - EMOTIONAL DISTRESS [None]
